FAERS Safety Report 25890469 (Version 1)
Quarter: 2025Q4

REPORT INFORMATION
  Report Type: Spontaneous
  Country: CA (occurrence: CA)
  Receive Date: 20251007
  Receipt Date: 20251007
  Transmission Date: 20260118
  Serious: Yes (Hospitalization)
  Sender: PFIZER
  Company Number: CA-PFIZER INC-202500197866

PATIENT
  Age: 38 Year
  Sex: Male

DRUGS (1)
  1. VELSIPITY [Suspect]
     Active Substance: ETRASIMOD ARGININE
     Dosage: UNK

REACTIONS (4)
  - Clostridium difficile infection [Unknown]
  - Condition aggravated [Unknown]
  - Drug ineffective [Unknown]
  - Escherichia infection [Unknown]
